FAERS Safety Report 6123051-8 (Version None)
Quarter: 2009Q1

REPORT INFORMATION
  Report Type: 
  Country: None (occurrence: None)
  Receive Date: 20090318
  Receipt Date: 20090303
  Transmission Date: 20090719
  Serious: Yes (Other)
  Sender: FDA-Public Use
  Company Number: CA-PFIZER INC-2008090733

PATIENT

DRUGS (15)
  1. SUNITINIB MALATE [Suspect]
     Indication: PROSTATE CANCER
     Route: 048
     Dates: start: 20080517
  2. *PEMETREXED [Suspect]
     Indication: PROSTATE CANCER
     Route: 042
     Dates: start: 20080516
  3. CARBOPLATIN [Suspect]
     Indication: PROSTATE CANCER
     Route: 042
     Dates: start: 20080516
  4. FOLIC ACID [Concomitant]
     Indication: PROPHYLAXIS
     Dates: start: 20060101
  5. LEVOTHYROXINE [Concomitant]
     Indication: HYPOTHYROIDISM
     Dates: start: 20060101
  6. PANTOPRAZOLE SODIUM [Concomitant]
     Indication: DYSPEPSIA
     Dates: start: 20040101
  7. METOPROLOL TARTRATE [Concomitant]
     Indication: ARRHYTHMIA PROPHYLAXIS
     Dates: start: 20050101
  8. CALCIUM [Concomitant]
     Indication: SUPPLEMENTATION THERAPY
     Dates: start: 20051216
  9. VITAMIN D [Concomitant]
     Indication: SUPPLEMENTATION THERAPY
     Dates: start: 20051216
  10. ASCORBIC ACID [Concomitant]
     Indication: SUPPLEMENTATION THERAPY
     Dates: start: 20051216
  11. LOMOTIL [Concomitant]
     Indication: DIARRHOEA
     Dosage: 2.5 MG, AS NEEDED
     Dates: start: 20080613, end: 20080706
  12. VITAMIN B-12 [Concomitant]
     Dosage: 1 EVERY 9 WEEKS
     Dates: start: 20080711, end: 20080711
  13. DEXAMETHASONE TAB [Concomitant]
     Indication: RASH
     Dosage: 4 MG, 2X/DAY
     Dates: start: 20080710, end: 20080712
  14. ZOFRAN [Concomitant]
     Indication: NAUSEA
     Dosage: 8 MG, 2X/DAY
     Dates: start: 20080711, end: 20080714
  15. ASPIRIN [Concomitant]
     Indication: ARRHYTHMIA PROPHYLAXIS
     Dates: start: 20080501

REACTIONS (1)
  - TRANSIENT ISCHAEMIC ATTACK [None]
